FAERS Safety Report 8774084 (Version 2)
Quarter: 2012Q4

REPORT INFORMATION
  Report Type: 
  Country: US (occurrence: US)
  Receive Date: 20120907
  Receipt Date: 20121129
  Transmission Date: 20130627
  Serious: Yes (Other)
  Sender: FDA-Public Use
  Company Number: PHEH2012US017435

PATIENT
  Sex: Male
  Weight: 117.91 kg

DRUGS (27)
  1. GILENYA [Suspect]
     Indication: MULTIPLE SCLEROSIS
     Dosage: 0.5 mg, QD
     Route: 048
     Dates: start: 20110809, end: 20120812
  2. TESTOSTERONE [Concomitant]
     Dosage: 200 mg/ml, UNK
     Dates: start: 20120829
  3. CENTRUM [Concomitant]
  4. TRICOR [Concomitant]
     Dosage: 145 mg, UNK
     Dates: start: 20100922
  5. PLAVIX [Concomitant]
     Dosage: 75 mg, UNK
     Dates: start: 20100621
  6. VITAMIN D [Concomitant]
     Dosage: 1000 U, UNK
  7. FUROSEMIDE [Concomitant]
     Dosage: 80 mg, UNK
     Dates: start: 20110616
  8. PREDNISONE [Concomitant]
     Dosage: 10 mg, UNK
  9. OMEPRAZOLE [Concomitant]
     Dosage: 20 mg, UNK
  10. VITAMIN E [Concomitant]
     Dosage: 4000 U, UNK
  11. ASPIRIN [Concomitant]
     Dosage: 81 mg, UNK
  12. FLOMAX [Concomitant]
     Dosage: 0.4 mg, QD
  13. CRESTOR [Concomitant]
     Dosage: 5 mg, UNK
     Dates: start: 20120828
  14. WARFARIN [Concomitant]
     Dosage: 5 mg, UNK
     Dates: start: 20100426
  15. DYAZIDE [Concomitant]
  16. LOTREL [Concomitant]
     Dosage: 20 mg, UNK
  17. TYLENOL [Concomitant]
     Dosage: 325 mg, UNK
  18. LEVITRA [Concomitant]
     Dosage: 20 mg, UNK
     Dates: start: 20120828
  19. LOVAZA [Concomitant]
     Dosage: 1 g, UNK
     Dates: start: 20100727
  20. LIPOFENE [Concomitant]
     Dosage: 150 mg, UNK
     Dates: start: 20120430
  21. RANITIDINE [Concomitant]
     Dosage: 150 mg, UNK
     Dates: start: 20120421
  22. BENAZEPRIL [Concomitant]
     Dosage: 40 mg, UNK
     Dates: start: 20111229
  23. CIALIS [Concomitant]
     Dosage: 20 mg, UNK
     Dates: start: 20111108
  24. NITROSTAT [Concomitant]
     Dosage: 0.4 mg, UNK
     Dates: start: 20111014
  25. DABIGATRAN [Concomitant]
     Dosage: 150 mg, UNK
     Dates: start: 20110822
  26. KLOR-CON [Concomitant]
     Dates: start: 20110320
  27. POTASSIUM CHLORIDE [Concomitant]
     Dosage: 20 MEq, UNK
     Dates: start: 20100809

REACTIONS (3)
  - Balance disorder [Recovering/Resolving]
  - Dizziness [Recovering/Resolving]
  - Vision blurred [Recovering/Resolving]
